FAERS Safety Report 7003864-0 (Version None)
Quarter: 2010Q3

REPORT INFORMATION
  Report Type: 
  Country: None (occurrence: None)
  Receive Date: 20100920
  Receipt Date: 20091217
  Transmission Date: 20110219
  Serious: No
  Sender: FDA-Public Use
  Company Number: US-WYE-H12687909

PATIENT
  Sex: Female
  Weight: 64.01 kg

DRUGS (5)
  1. PRISTIQ [Suspect]
     Indication: DEPRESSION
     Route: 048
     Dates: start: 20091001, end: 20091201
  2. PRISTIQ [Suspect]
     Route: 048
     Dates: start: 20091201
  3. ATENOLOL [Concomitant]
  4. XANAX [Concomitant]
  5. CADUET [Concomitant]

REACTIONS (5)
  - ANXIETY [None]
  - CHEST PAIN [None]
  - FATIGUE [None]
  - FEELING JITTERY [None]
  - HEADACHE [None]
